FAERS Safety Report 23986054 (Version 2)
Quarter: 2024Q3

REPORT INFORMATION
  Report Type: Spontaneous
  Country: US (occurrence: US)
  Receive Date: 20240618
  Receipt Date: 20240701
  Transmission Date: 20241017
  Serious: Yes (Hospitalization)
  Sender: TEVA
  Company Number: US-TEVA-VS-3203187

PATIENT
  Age: 46 Year
  Sex: Male

DRUGS (3)
  1. URSODIOL [Suspect]
     Active Substance: URSODIOL
     Indication: Cholestatic liver injury
     Route: 065
  2. LAMOTRIGINE [Concomitant]
     Active Substance: LAMOTRIGINE
     Indication: Bipolar disorder
  3. HERBALS\TRIBULUS TERRESTRIS [Suspect]
     Active Substance: HERBALS\TRIBULUS TERRESTRIS
     Indication: Supplementation therapy
     Dosage: ORAL TRIBULUS SUPPLEMENTS DAILY FOR 2MONTHS
     Route: 048

REACTIONS (4)
  - Nephropathy toxic [Recovered/Resolved]
  - Hepatotoxicity [Recovered/Resolved]
  - Drug ineffective [Unknown]
  - Cholestatic liver injury [Recovered/Resolved]
